FAERS Safety Report 7199133-9 (Version None)
Quarter: 2010Q4

REPORT INFORMATION
  Report Type: 
  Country: None (occurrence: None)
  Receive Date: 20101223
  Receipt Date: 20101223
  Transmission Date: 20110411
  Serious: Yes (Hospitalization, Other)
  Sender: FDA-Public Use
  Company Number: None

PATIENT
  Age: 48 Year
  Sex: Female
  Weight: 70.3075 kg

DRUGS (1)
  1. LEVOXYL [Suspect]
     Dosage: .125 DAILY PO
     Route: 048
     Dates: start: 20100930, end: 20101123

REACTIONS (13)
  - AGITATION [None]
  - BELLIGERENCE [None]
  - BLOOD THYROID STIMULATING HORMONE INCREASED [None]
  - DEHYDRATION [None]
  - DISTURBANCE IN ATTENTION [None]
  - FREQUENT BOWEL MOVEMENTS [None]
  - MEMORY IMPAIRMENT [None]
  - POLLAKIURIA [None]
  - PRODUCT MEASURED POTENCY ISSUE [None]
  - PRODUCT QUALITY ISSUE [None]
  - SLEEP DISORDER [None]
  - THIRST [None]
  - THYROXINE INCREASED [None]
